FAERS Safety Report 18533196 (Version 1)
Quarter: 2020Q4

REPORT INFORMATION
  Report Type: Other
  Country: CA (occurrence: CA)
  Receive Date: 20201123
  Receipt Date: 20201123
  Transmission Date: 20210114
  Serious: Yes (Hospitalization)
  Sender: FDA-Public Use
  Company Number: CA-CELLTRION INC.-2020CA031817

PATIENT

DRUGS (12)
  1. RITUXIMAB (UNKNOWN) [Suspect]
     Active Substance: RITUXIMAB
     Dosage: 1000 MILLIGRAM, 1 EVERY 15 DAYS
     Route: 042
  2. PREDNISONE. [Concomitant]
     Active Substance: PREDNISONE
  3. TYLENOL [Concomitant]
     Active Substance: ACETAMINOPHEN
  4. METHOTREXATE. [Concomitant]
     Active Substance: METHOTREXATE
     Route: 065
  5. CODEINE [Concomitant]
     Active Substance: CODEINE
  6. ESOMEPRAZOLE. [Concomitant]
     Active Substance: ESOMEPRAZOLE MAGNESIUM
  7. MORPHINE [Concomitant]
     Active Substance: MORPHINE
  8. SALBUTAMOL [Concomitant]
     Active Substance: ALBUTEROL
     Route: 065
  9. SYMBICORT [Concomitant]
     Active Substance: BUDESONIDE\FORMOTEROL FUMARATE DIHYDRATE
     Route: 065
  10. RITUXIMAB (UNKNOWN) [Suspect]
     Active Substance: RITUXIMAB
     Indication: RHEUMATOID ARTHRITIS
     Dosage: 1000 MILLIGRAM
     Route: 042
  11. METOPROLOL. [Concomitant]
     Active Substance: METOPROLOL
  12. SUCRALFATE. [Concomitant]
     Active Substance: SUCRALFATE

REACTIONS (4)
  - Sepsis [Recovered/Resolved]
  - Upper respiratory tract infection [Recovered/Resolved]
  - Pneumonia [Recovered/Resolved]
  - Off label use [Unknown]
